FAERS Safety Report 4530812-5 (Version None)
Quarter: 2004Q4

REPORT INFORMATION
  Report Type: 
  Country: None (occurrence: None)
  Receive Date: 20041216
  Receipt Date: 20041208
  Transmission Date: 20050328
  Serious: Yes (Hospitalization)
  Sender: FDA-Public Use
  Company Number: 2004UW25142

PATIENT
  Age: 36 Year
  Sex: Female
  Weight: 34 kg

DRUGS (1)
  1. EXEMESTANE [Suspect]
     Indication: BREAST CANCER METASTATIC
     Dosage: 25 MG QD PO
     Route: 048
     Dates: start: 20041206, end: 20041206

REACTIONS (4)
  - ANXIETY [None]
  - COUGH [None]
  - DYSPNOEA [None]
  - TREMOR [None]
